FAERS Safety Report 21944251 (Version 1)
Quarter: 2023Q1

REPORT INFORMATION
  Report Type: Spontaneous
  Country: US (occurrence: US)
  Receive Date: 20230202
  Receipt Date: 20230202
  Transmission Date: 20230418
  Serious: Yes (Hospitalization, Other)
  Sender: FDA-Public Use
  Company Number: US-SA-2023SA034709

PATIENT
  Age: 77 Year
  Sex: Female

DRUGS (2)
  1. DUPILUMAB [Suspect]
     Active Substance: DUPILUMAB
     Indication: Nasal polyps
     Dosage: UNK
  2. IMMUNE GLOBULIN NOS [Concomitant]
     Active Substance: IMMUNE GLOBULIN NOS
     Indication: Humoral immune defect
     Dosage: UNK

REACTIONS (5)
  - Hypereosinophilic syndrome [Recovering/Resolving]
  - Eosinophilic myocarditis [Recovering/Resolving]
  - Cerebral infarction [Recovering/Resolving]
  - Mental status changes [Recovering/Resolving]
  - Confusional state [Recovering/Resolving]
